FAERS Safety Report 8004344-6 (Version None)
Quarter: 2011Q4

REPORT INFORMATION
  Report Type: 
  Country: None (occurrence: None)
  Receive Date: 20111223
  Receipt Date: 20111219
  Transmission Date: 20120403
  Serious: No
  Sender: FDA-Public Use
  Company Number: US-BIOGENIDEC-2011BI048262

PATIENT
  Age: 52 Year
  Sex: Female

DRUGS (6)
  1. TYSABRI [Suspect]
     Indication: MULTIPLE SCLEROSIS
     Route: 042
     Dates: start: 20070209
  2. COUMADIN [Concomitant]
     Indication: ATRIAL FIBRILLATION
     Dates: start: 19900101, end: 20101129
  3. COPAXONE [Concomitant]
     Indication: MULTIPLE SCLEROSIS
  4. ASPIRIN [Concomitant]
     Indication: ATRIAL FIBRILLATION
     Dates: start: 20101206
  5. SOTALOL HCL [Concomitant]
     Indication: HYPERTENSION
     Dates: start: 20050923
  6. CYTOXAN [Concomitant]
     Indication: MULTIPLE SCLEROSIS

REACTIONS (3)
  - TREMOR [None]
  - HYPERTENSION [None]
  - OPTIC NEURITIS [None]
